FAERS Safety Report 10878538 (Version 1)
Quarter: 2015Q1

REPORT INFORMATION
  Report Type: Spontaneous
  Country: US (occurrence: US)
  Receive Date: 20150302
  Receipt Date: 20150302
  Transmission Date: 20150721
  Serious: No
  Sender: FDA-Public Use
  Company Number: US-ABBVIE-14P-163-1308168-00

PATIENT
  Age: 63 Year
  Sex: Female

DRUGS (2)
  1. ESTRADIOL. [Suspect]
     Active Substance: ESTRADIOL
     Indication: PRODUCT USED FOR UNKNOWN INDICATION
     Route: 065
  2. ANDROGEL [Suspect]
     Active Substance: TESTOSTERONE
     Indication: PRODUCT USED FOR UNKNOWN INDICATION
     Route: 065

REACTIONS (11)
  - Hyperhidrosis [Unknown]
  - Fluid retention [Unknown]
  - Hot flush [Unknown]
  - Weight increased [Unknown]
  - Off label use [Unknown]
  - Depression [Unknown]
  - Headache [Unknown]
  - Anxiety [Unknown]
  - Unevaluable event [Unknown]
  - Palpitations [Unknown]
  - Night sweats [Unknown]
